FAERS Safety Report 24396548 (Version 1)
Quarter: 2024Q4

REPORT INFORMATION
  Report Type: Spontaneous
  Country: CN (occurrence: CN)
  Receive Date: 20241004
  Receipt Date: 20241004
  Transmission Date: 20250115
  Serious: Yes (Life-Threatening, Other)
  Sender: BAYER
  Company Number: CN-BAYER-2024A141703

PATIENT
  Age: 55 Year
  Sex: Female
  Weight: 53 kg

DRUGS (1)
  1. GADOBUTROL [Suspect]
     Active Substance: GADOBUTROL
     Indication: Magnetic resonance imaging
     Dosage: 15 ML, ONCE
     Route: 042
     Dates: start: 20240929, end: 20240929

REACTIONS (14)
  - Anaphylactic shock [Recovering/Resolving]
  - Oxygen saturation decreased [Recovered/Resolved]
  - Heart rate increased [Recovering/Resolving]
  - Blood pressure immeasurable [Recovered/Resolved]
  - Anisocoria [None]
  - Pupillary reflex impaired [None]
  - Urinary incontinence [None]
  - Unresponsive to stimuli [Recovered/Resolved]
  - Laryngeal oedema [None]
  - Tachypnoea [Recovered/Resolved]
  - Flushing [None]
  - Rash erythematous [Recovering/Resolving]
  - Dyspnoea [Recovered/Resolved]
  - Snoring [None]

NARRATIVE: CASE EVENT DATE: 20240929
